FAERS Safety Report 4902907-5 (Version None)
Quarter: 2006Q1

REPORT INFORMATION
  Report Type: 
  Country: None (occurrence: None)
  Receive Date: 20060207
  Receipt Date: 20051006
  Transmission Date: 20060701
  Serious: Yes (Hospitalization, Other)
  Sender: FDA-Public Use
  Company Number: FR-NOVOPROD-247593

PATIENT
  Age: 76 Year
  Sex: Female
  Weight: 78 kg

DRUGS (5)
  1. NORDITROPIN SIMPLEXX [Suspect]
     Indication: GROWTH HORMONE DEFICIENCY
     Dosage: .2 MG, QD
     Dates: start: 20010103
  2. HYDROCORTISONE [Concomitant]
     Dosage: 10 MG, QD
     Route: 048
     Dates: start: 19950809
  3. LEVOTHYROX [Concomitant]
     Dosage: 125 UG, QD
     Route: 048
     Dates: start: 19900201
  4. LOXEN [Concomitant]
     Dosage: 50 MG, QD
     Route: 048
     Dates: start: 20030101
  5. COTAREG [Concomitant]
     Dosage: UNK, UNK
     Route: 048
     Dates: start: 20020101

REACTIONS (2)
  - ABSCESS ORAL [None]
  - TOOTH EXTRACTION [None]
